FAERS Safety Report 6489997-6 (Version None)
Quarter: 2009Q4

REPORT INFORMATION
  Report Type: 
  Country: None (occurrence: None)
  Receive Date: 20091209
  Receipt Date: 20091209
  Transmission Date: 20100525
  Serious: No
  Sender: FDA-Public Use
  Company Number: None

PATIENT
  Age: 23 Year
  Sex: Female
  Weight: 104.3273 kg

DRUGS (1)
  1. COLD REMEDY LIQUI-LOZ, CHERRY FLAVOR [Suspect]
     Dosage: ONE DOSE
     Dates: start: 20091111, end: 20091111

REACTIONS (1)
  - AGEUSIA [None]
